FAERS Safety Report 7151040-3 (Version None)
Quarter: 2010Q4

REPORT INFORMATION
  Report Type: 
  Country: None (occurrence: None)
  Receive Date: 20101210
  Receipt Date: 20101203
  Transmission Date: 20110411
  Serious: Yes (Hospitalization)
  Sender: FDA-Public Use
  Company Number: B0687994A

PATIENT
  Sex: Female

DRUGS (3)
  1. AMOXICILLIN AND CLAVULANATE POTASSIUM [Suspect]
     Indication: EAR INFECTION
     Dosage: 1G PER DAY
     Route: 048
     Dates: start: 20101129, end: 20101129
  2. FLUIMUCIL [Concomitant]
     Indication: EAR INFECTION
     Route: 048
  3. NASONEX [Concomitant]
     Indication: EAR INFECTION
     Route: 045

REACTIONS (5)
  - ANAPHYLACTIC SHOCK [None]
  - DYSPNOEA [None]
  - HYPERSENSITIVITY [None]
  - PRURITUS GENERALISED [None]
  - SKIN STRIAE [None]
